FAERS Safety Report 6931398-8 (Version None)
Quarter: 2010Q3

REPORT INFORMATION
  Report Type: 
  Country: None (occurrence: None)
  Receive Date: 20100819
  Receipt Date: 20100810
  Transmission Date: 20110219
  Serious: Yes (Hospitalization, Other)
  Sender: FDA-Public Use
  Company Number: JP-JNJFOC-20100703799

PATIENT
  Sex: Female

DRUGS (5)
  1. LEVOFLOXACIN [Suspect]
     Indication: RESPIRATORY TRACT INFECTION
     Route: 048
  2. BFLUID [Concomitant]
     Route: 065
  3. BFLUID [Concomitant]
     Route: 065
  4. VITAMIN TAB [Concomitant]
     Route: 065
  5. VITAMIN TAB [Concomitant]
     Route: 065

REACTIONS (4)
  - ALTERED STATE OF CONSCIOUSNESS [None]
  - GRAND MAL CONVULSION [None]
  - HEMIPLEGIA [None]
  - LOSS OF CONSCIOUSNESS [None]
